FAERS Safety Report 10841881 (Version 1)
Quarter: 2015Q1

REPORT INFORMATION
  Report Type: Report from Study
  Country: US (occurrence: US)
  Receive Date: 20150220
  Receipt Date: 20150220
  Transmission Date: 20150721
  Serious: Yes (Hospitalization)
  Sender: FDA-Public Use
  Company Number: US-ABBVIE-14P-163-1263968-00

PATIENT
  Age: 39 Year
  Sex: Female
  Weight: 87.62 kg

DRUGS (2)
  1. HUMIRA [Suspect]
     Active Substance: ADALIMUMAB
     Indication: PSORIATIC ARTHROPATHY
     Route: 058
     Dates: start: 201401, end: 201402
  2. METHOTREXATE [Concomitant]
     Active Substance: METHOTREXATE
     Indication: PSORIATIC ARTHROPATHY

REACTIONS (9)
  - Blood chloride increased [Unknown]
  - Incision site infection [Recovering/Resolving]
  - Wound infection staphylococcal [Recovering/Resolving]
  - Alanine aminotransferase decreased [Unknown]
  - Upper respiratory tract infection [Unknown]
  - Platelet count increased [Unknown]
  - Pneumonia [Recovered/Resolved]
  - Incision site pain [Unknown]
  - Aspartate aminotransferase decreased [Unknown]

NARRATIVE: CASE EVENT DATE: 2014
